FAERS Safety Report 23492915 (Version 1)
Quarter: 2024Q1

REPORT INFORMATION
  Report Type: Spontaneous
  Country: FR (occurrence: FR)
  Receive Date: 20240207
  Receipt Date: 20240207
  Transmission Date: 20240410
  Serious: Yes (Other)
  Sender: FDA-Public Use
  Company Number: None

PATIENT
  Age: 77 Year
  Sex: Female
  Weight: 55 kg

DRUGS (10)
  1. QUETIAPINE [Suspect]
     Active Substance: QUETIAPINE
     Indication: Delusional disorder, persecutory type
     Dates: start: 20231115, end: 20231122
  2. SERTRALINE HYDROCHLORIDE [Suspect]
     Active Substance: SERTRALINE HYDROCHLORIDE
     Indication: Depression
     Dosage: GRADUAL INCREASE FROM 25 MG/DAY TO 100 MG/DAY SINCE 22/11/2023
     Dates: start: 20231026
  3. FLECAINIDE ACETATE [Concomitant]
     Active Substance: FLECAINIDE ACETATE
     Dates: start: 20231005
  4. CEFOTAXIME SODIUM [Concomitant]
     Active Substance: CEFOTAXIME SODIUM
     Dates: start: 20231122, end: 20231206
  5. AMIODARONE [Concomitant]
     Active Substance: AMIODARONE
     Dates: start: 20230620, end: 20231005
  6. LORAZEPAM [Concomitant]
     Active Substance: LORAZEPAM
     Dates: start: 20231115
  7. PACLITAXEL [Concomitant]
     Active Substance: PACLITAXEL
     Dates: start: 20231107
  8. ELIQUIS [Concomitant]
     Active Substance: APIXABAN
     Dates: start: 20230620
  9. CARBOPLATIN [Concomitant]
     Active Substance: CARBOPLATIN
     Dates: start: 20231107
  10. OXAZEPAM [Concomitant]
     Active Substance: OXAZEPAM
     Dates: start: 20231011, end: 20231115

REACTIONS (2)
  - Cholestasis [Recovered/Resolved]
  - Hepatocellular injury [Recovering/Resolving]

NARRATIVE: CASE EVENT DATE: 20231120
